FAERS Safety Report 24683997 (Version 2)
Quarter: 2025Q1

REPORT INFORMATION
  Report Type: Report from Study
  Country: ZA (occurrence: ZA)
  Receive Date: 20241202
  Receipt Date: 20250109
  Transmission Date: 20250408
  Serious: Yes (Other)
  Sender: ROCHE
  Company Number: ZA-ROCHE-10000138580

PATIENT
  Sex: Female

DRUGS (1)
  1. OCREVUS [Suspect]
     Active Substance: OCRELIZUMAB
     Indication: Relapsing-remitting multiple sclerosis
     Dosage: THEREAFTER 600MG EVERY 6 MONTHS
     Route: 042
     Dates: start: 20230707

REACTIONS (11)
  - Intervertebral disc protrusion [Unknown]
  - Magnetic resonance imaging head abnormal [Unknown]
  - Spinal meningeal cyst [Unknown]
  - Intervertebral disc degeneration [Unknown]
  - Magnetic resonance imaging spinal abnormal [Unknown]
  - Facet joint syndrome [Unknown]
  - Back pain [Unknown]
  - Multiple sclerosis [Unknown]
  - Headache [Unknown]
  - Vision blurred [Unknown]
  - Ligamentum flavum hypertrophy [Unknown]
